FAERS Safety Report 10134388 (Version 2)
Quarter: 2014Q2

REPORT INFORMATION
  Report Type: Spontaneous
  Country: US (occurrence: US)
  Receive Date: 20140428
  Receipt Date: 20140502
  Transmission Date: 20141212
  Serious: Yes (Hospitalization, Other)
  Sender: FDA-Public Use
  Company Number: US-BAXTER-2014BAX020437

PATIENT
  Age: 67 Year
  Sex: Male

DRUGS (2)
  1. DIANEAL LOW CALCIUM [Suspect]
     Indication: RENAL FAILURE CHRONIC
     Route: 033
     Dates: start: 2010
  2. EXTRANEAL [Suspect]
     Indication: RENAL FAILURE CHRONIC
     Route: 033
     Dates: start: 2010

REACTIONS (5)
  - Blood potassium increased [Recovering/Resolving]
  - Atrial fibrillation [Recovering/Resolving]
  - Cardiac valve disease [Recovering/Resolving]
  - Cardiac aneurysm [Recovering/Resolving]
  - Dehydration [Recovering/Resolving]
